FAERS Safety Report 15308100 (Version 1)
Quarter: 2018Q3

REPORT INFORMATION
  Report Type: Spontaneous
  Country: US (occurrence: US)
  Receive Date: 20180822
  Receipt Date: 20180822
  Transmission Date: 20181010
  Serious: Yes (Other)
  Sender: FDA-Public Use
  Company Number: US-JNJFOC-20180810433

PATIENT
  Age: 27 Year
  Sex: Female

DRUGS (2)
  1. MOTRIN [Suspect]
     Active Substance: IBUPROFEN
     Route: 065
  2. MOTRIN [Suspect]
     Active Substance: IBUPROFEN
     Indication: SCHIZOPHRENIA
     Route: 065
     Dates: start: 20180122, end: 20180122

REACTIONS (3)
  - Urinary retention [Recovered/Resolved]
  - Product use in unapproved indication [Unknown]
  - Flank pain [Recovered/Resolved]

NARRATIVE: CASE EVENT DATE: 20180122
